FAERS Safety Report 10424300 (Version 2)
Quarter: 2014Q3

REPORT INFORMATION
  Report Type: Report from Study
  Country: BR (occurrence: BR)
  Receive Date: 20140902
  Receipt Date: 20140915
  Transmission Date: 20150326
  Serious: Yes (Hospitalization, Disabling, Other)
  Sender: FDA-Public Use
  Company Number: PHHY2014BR110451

PATIENT
  Age: 57 Year
  Sex: Female
  Weight: 89 kg

DRUGS (7)
  1. FORASEQ [Suspect]
     Active Substance: BUDESONIDE\FORMOTEROL FUMARATE
     Indication: CHRONIC OBSTRUCTIVE PULMONARY DISEASE
     Dosage: UNK UKN, BID
  2. INDAPAMIDE. [Concomitant]
     Active Substance: INDAPAMIDE
     Indication: HYPERTENSION
     Dosage: 1 DF (1.25), PER DAY
     Route: 048
     Dates: start: 201312
  3. GLIFAGE [Concomitant]
     Active Substance: METFORMIN HYDROCHLORIDE
     Indication: DIABETES MELLITUS
     Dosage: 1 DF (500MG), PER DAY
     Route: 048
     Dates: start: 201407
  4. RIVOTRIL [Concomitant]
     Active Substance: CLONAZEPAM
     Indication: RELAXATION THERAPY
     Dosage: 1 DF (0.5MG), UNK
     Route: 048
     Dates: start: 201312
  5. FORASEQ [Suspect]
     Active Substance: BUDESONIDE\FORMOTEROL FUMARATE
     Dosage: 1 DF, DAILY
     Route: 055
  6. VALSARTAN. [Concomitant]
     Active Substance: VALSARTAN
     Dosage: 2 DF (160MG), PER DAY
     Route: 048
  7. VALSARTAN. [Concomitant]
     Active Substance: VALSARTAN
     Indication: HYPERTENSION
     Dosage: UNK UNK, BID
     Dates: start: 201312

REACTIONS (5)
  - Dysarthria [Unknown]
  - Bronchitis [Recovered/Resolved]
  - Cerebrovascular accident [Recovered/Resolved]
  - Speech disorder [Recovering/Resolving]
  - Acute lung injury [Recovered/Resolved]

NARRATIVE: CASE EVENT DATE: 20131208
